FAERS Safety Report 13185817 (Version 3)
Quarter: 2017Q1

REPORT INFORMATION
  Report Type: Spontaneous
  Country: JP (occurrence: JP)
  Receive Date: 20170203
  Receipt Date: 20170227
  Transmission Date: 20170428
  Serious: Yes (Death, Other)
  Sender: FDA-Public Use
  Company Number: JP-ABBVIE-17P-087-1842528-00

PATIENT
  Age: 48 Year
  Sex: Male
  Weight: 65 kg

DRUGS (3)
  1. ENTECAVIR HYDRATE [Concomitant]
     Indication: CHRONIC HEPATITIS B
     Route: 048
     Dates: start: 20160819, end: 20170118
  2. DONEPEZIL HYDROCHLORIDE. [Concomitant]
     Active Substance: DONEPEZIL HYDROCHLORIDE
     Indication: CEREBRAL DISORDER
     Route: 048
     Dates: end: 20170118
  3. VIEKIRAX [Suspect]
     Active Substance: OMBITASVIR\PARITAPREVIR\RITONAVIR
     Indication: CHRONIC HEPATITIS C
     Route: 048
     Dates: start: 20160902, end: 20161124

REACTIONS (12)
  - Vena cava thrombosis [Fatal]
  - Acute hepatic failure [Fatal]
  - Nausea [Unknown]
  - Vomiting [Unknown]
  - Gallbladder disorder [Unknown]
  - Malaise [Unknown]
  - Pallor [Unknown]
  - Hypoglycaemia [Unknown]
  - Ascites [Unknown]
  - Hepatorenal syndrome [Fatal]
  - Hypoperfusion [Unknown]
  - Splenomegaly [Unknown]

NARRATIVE: CASE EVENT DATE: 20170111
